FAERS Safety Report 12912855 (Version 1)
Quarter: 2016Q4

REPORT INFORMATION
  Report Type: Spontaneous
  Country: JP (occurrence: JP)
  Receive Date: 20161104
  Receipt Date: 20161104
  Transmission Date: 20170207
  Serious: Yes (Other)
  Sender: FDA-Public Use
  Company Number: JP-PRESTIUM-2016RN000507

PATIENT

DRUGS (2)
  1. ZOVIRAX [Suspect]
     Active Substance: ACYCLOVIR
     Indication: PRODUCT USED FOR UNKNOWN INDICATION
     Dosage: UNK
     Route: 048
  2. CEFAZOLIN SODIUM. [Concomitant]
     Active Substance: CEFAZOLIN SODIUM

REACTIONS (5)
  - Hyponatraemia [Unknown]
  - Depressed level of consciousness [Unknown]
  - Inappropriate antidiuretic hormone secretion [Unknown]
  - Hypouricaemia [Unknown]
  - Altered state of consciousness [Unknown]
